FAERS Safety Report 10748712 (Version 2)
Quarter: 2015Q1

REPORT INFORMATION
  Report Type: Report from Study
  Country: FR (occurrence: FR)
  Receive Date: 20150129
  Receipt Date: 20150129
  Transmission Date: 20150721
  Serious: Yes (Disabling)
  Sender: FDA-Public Use
  Company Number: FR-UCBSA-2015001637

PATIENT
  Sex: Female
  Weight: 90 kg

DRUGS (10)
  1. ACTISKENAN [Concomitant]
     Active Substance: MORPHINE SULFATE
     Indication: RHEUMATOID ARTHRITIS
     Dosage: 10 MG, 4X/DAY (QID)
     Dates: start: 201304
  2. METOJECT [Concomitant]
     Active Substance: METHOTREXATE SODIUM
     Indication: RHEUMATOID ARTHRITIS
     Dosage: 20 MG, WEEKLY (QW)
     Dates: start: 201304, end: 201402
  3. PREDNISONE. [Concomitant]
     Active Substance: PREDNISONE
     Indication: RHEUMATOID ARTHRITIS
     Dosage: 40 MG DAILY
     Dates: start: 201304
  4. TRIATEC [Concomitant]
     Active Substance: RAMIPRIL
     Indication: SUBCLAVIAN ARTERY STENOSIS
     Dosage: 1.25 MG DAILY
     Dates: start: 20130725
  5. CERTOLIZUMAB PEGOL RA [Suspect]
     Active Substance: CERTOLIZUMAB PEGOL
     Indication: RHEUMATOID ARTHRITIS
     Dosage: 200 MG, EV 2 WEEKS(QOW)
     Route: 058
     Dates: start: 20131021, end: 20140219
  6. KARDEGIC [Concomitant]
     Active Substance: ASPIRIN LYSINE
     Indication: SUBCLAVIAN ARTERY STENOSIS
     Dosage: 160 MG DAILY
     Dates: start: 20130725
  7. PARACETAMOL [Concomitant]
     Active Substance: ACETAMINOPHEN
     Indication: RHEUMATOID ARTHRITIS
     Dosage: 1 G, AS NEEDED (PRN) ON REQUEST
     Dates: start: 2011
  8. TAHOR [Concomitant]
     Active Substance: ATORVASTATIN CALCIUM
     Indication: SUBCLAVIAN ARTERY STENOSIS
     Dosage: 20 MG DAILY
     Dates: start: 20130725
  9. SKENAN [Concomitant]
     Active Substance: MORPHINE SULFATE
     Indication: RHEUMATOID ARTHRITIS
     Dosage: 100 MG, 2X/DAY (BID)
     Dates: start: 201304
  10. SPECIAFOLDINE [Concomitant]
     Active Substance: FOLIC ACID
     Indication: RHEUMATOID ARTHRITIS
     Dosage: 5 MG, WEEKLY (QW)
     Dates: start: 201304

REACTIONS (1)
  - Hiccups [Recovered/Resolved]

NARRATIVE: CASE EVENT DATE: 20131021
